FAERS Safety Report 21106501 (Version 2)
Quarter: 2022Q3

REPORT INFORMATION
  Report Type: Spontaneous
  Country: JP (occurrence: None)
  Receive Date: 20220720
  Receipt Date: 20220727
  Transmission Date: 20221027
  Serious: Yes (Other)
  Sender: FDA-Public Use
  Company Number: 2022A255565

PATIENT
  Age: 70 Year
  Sex: Female

DRUGS (3)
  1. LYNPARZA [Suspect]
     Active Substance: OLAPARIB
     Indication: Ovarian cancer
     Dosage: DOSE UNKNOWN
     Route: 048
  2. HERBALS [Concomitant]
     Active Substance: HERBALS
     Indication: Intestinal obstruction
     Dosage: DOSE UNKNOWN
     Route: 048
  3. HERBALS [Concomitant]
     Active Substance: HERBALS
     Dosage: DOSE UNKNOWN
     Route: 048

REACTIONS (2)
  - Drug-induced liver injury [Unknown]
  - Autoimmune haemolytic anaemia [Unknown]
